FAERS Safety Report 9174795 (Version 5)
Quarter: 2014Q1

REPORT INFORMATION
  Report Type: Spontaneous
  Country: US (occurrence: US)
  Receive Date: 20130320
  Receipt Date: 20140109
  Transmission Date: 20141002
  Serious: Yes (Hospitalization, Disabling, Other)
  Sender: FDA-Public Use
  Company Number: US-009507513-1303USA009056

PATIENT
  Sex: Female

DRUGS (7)
  1. FOSAMAX [Suspect]
     Indication: OSTEOPENIA
     Dosage: 70 MG, UNK
     Route: 048
     Dates: start: 20010205, end: 20080225
  2. ALENDRONATE SODIUM [Suspect]
     Indication: OSTEOPENIA
     Dosage: 70 MG, UNK
     Route: 048
     Dates: start: 20080225, end: 20110327
  3. CALCIUM CARBONATE [Concomitant]
     Indication: ROUTINE HEALTH MAINTENANCE
     Dosage: 500 MG, UNK
     Dates: start: 1985
  4. VITAMINS (UNSPECIFIED) [Concomitant]
     Indication: ROUTINE HEALTH MAINTENANCE
     Dosage: 2000 IU, UNK
     Dates: start: 2000
  5. VITAMIN D (UNSPECIFIED) [Concomitant]
     Indication: ROUTINE HEALTH MAINTENANCE
     Dosage: 500 MG, UNK
     Dates: start: 1985
  6. PAXIL [Concomitant]
     Indication: DEPRESSION
     Dosage: UNK
     Dates: start: 1996
  7. ADVAIR [Concomitant]
     Indication: ASTHMA
     Dosage: UNK
     Dates: start: 2001

REACTIONS (25)
  - Femur fracture [Not Recovered/Not Resolved]
  - Open reduction of fracture [Unknown]
  - Low turnover osteopathy [Not Recovered/Not Resolved]
  - Packed red blood cell transfusion [Unknown]
  - Haemorrhagic anaemia [Not Recovered/Not Resolved]
  - Packed red blood cell transfusion [Unknown]
  - Barrett^s oesophagus [Unknown]
  - Hiatus hernia [Unknown]
  - Oesophagitis [Unknown]
  - Gastritis [Unknown]
  - Blood cholesterol increased [Unknown]
  - Hypertension [Unknown]
  - Groin pain [Unknown]
  - Arthritis [Unknown]
  - Urinary tract infection [Unknown]
  - Decreased appetite [Unknown]
  - Sinus tachycardia [Unknown]
  - Hysterectomy [Unknown]
  - Haemorrhoid operation [Unknown]
  - Ankle fracture [Not Recovered/Not Resolved]
  - Osteoarthritis [Unknown]
  - Fibula fracture [Unknown]
  - Exostosis [Unknown]
  - Pain in extremity [Unknown]
  - Gastrooesophageal reflux disease [Unknown]
